FAERS Safety Report 5651619-1 (Version None)
Quarter: 2008Q1

REPORT INFORMATION
  Report Type: 
  Country: None (occurrence: None)
  Receive Date: 20080305
  Receipt Date: 20080225
  Transmission Date: 20080703
  Serious: Yes (Hospitalization)
  Sender: FDA-Public Use
  Company Number: FR-AVENTIS-200810790FR

PATIENT
  Age: 73 Year
  Sex: Female

DRUGS (2)
  1. LOVENOX [Suspect]
     Indication: CATHETER THROMBOSIS
     Route: 058
     Dates: start: 20080111, end: 20080116
  2. HEPARINE CHOAY [Suspect]
     Indication: CATHETER THROMBOSIS
     Route: 042
     Dates: start: 20080103, end: 20080111

REACTIONS (4)
  - EOSINOPHIL COUNT INCREASED [None]
  - PRURITUS [None]
  - PYREXIA [None]
  - RASH GENERALISED [None]
